FAERS Safety Report 6194492-8 (Version None)
Quarter: 2009Q2

REPORT INFORMATION
  Report Type: 
  Country: None (occurrence: None)
  Receive Date: 20090514
  Receipt Date: 20090422
  Transmission Date: 20091009
  Serious: Yes (Hospitalization, Other)
  Sender: FDA-Public Use
  Company Number: JPI-P-006006

PATIENT
  Age: 20 Year
  Sex: Male

DRUGS (3)
  1. XYREM [Suspect]
     Indication: CATAPLEXY
     Dosage: 4.5 GM (2.25 GM,2 IN 1 D),ORAL;  6 GM (3 GM,2 IN 1 D),ORAL
     Route: 048
     Dates: start: 20081127, end: 20081222
  2. XYREM [Suspect]
     Indication: CATAPLEXY
     Dosage: 4.5 GM (2.25 GM,2 IN 1 D),ORAL;  6 GM (3 GM,2 IN 1 D),ORAL
     Route: 048
     Dates: start: 20081223
  3. CLONAZEPAM [Suspect]
     Indication: CONVULSION
     Dosage: 1 MG/1 ML), INTRAVENOUS
     Route: 042
     Dates: start: 20081223, end: 20081223

REACTIONS (6)
  - ASPIRATION [None]
  - CARDIO-RESPIRATORY ARREST [None]
  - CONDITION AGGRAVATED [None]
  - CONVULSION [None]
  - LOWRY-WOOD SYNDROME [None]
  - SLEEP APNOEA SYNDROME [None]
